FAERS Safety Report 6419051-0 (Version None)
Quarter: 2009Q4

REPORT INFORMATION
  Report Type: 
  Country: None (occurrence: None)
  Receive Date: 20091027
  Receipt Date: 20091013
  Transmission Date: 20100525
  Serious: Yes (Disabling, Other)
  Sender: FDA-Public Use
  Company Number: 2009AP004157

PATIENT
  Age: 67 Year
  Sex: Male

DRUGS (4)
  1. TERBINAFINE HCL [Suspect]
     Indication: ONYCHOMYCOSIS
     Dosage: 250 MG; PO; QD
     Route: 048
     Dates: start: 20090817, end: 20090824
  2. ASPIRIN [Concomitant]
  3. EZETIMIBE [Concomitant]
  4. SIMVASTATIN [Concomitant]

REACTIONS (2)
  - MALAISE [None]
  - PAIN [None]
